FAERS Safety Report 17031031 (Version 1)
Quarter: 2019Q4

REPORT INFORMATION
  Report Type: Spontaneous
  Country: CN (occurrence: CN)
  Receive Date: 20191114
  Receipt Date: 20191114
  Transmission Date: 20200122
  Serious: Yes (Hospitalization)
  Sender: FDA-Public Use
  Company Number: NVSC2019CN031994

PATIENT
  Age: 31 Year
  Sex: Female

DRUGS (9)
  1. DEXAMETHASONE. [Suspect]
     Active Substance: DEXAMETHASONE
     Indication: ACUTE LYMPHOCYTIC LEUKAEMIA
     Dosage: 10 MG
     Route: 042
     Dates: start: 2017, end: 2017
  2. VINCRISTINE [Suspect]
     Active Substance: VINCRISTINE
     Indication: ACUTE LYMPHOCYTIC LEUKAEMIA
     Dosage: 2 MG(ON DAYS 1, 8, 15, AND 22)
     Route: 065
     Dates: start: 2017, end: 2017
  3. IDARUBICIN [Suspect]
     Active Substance: IDARUBICIN
     Indication: ACUTE LYMPHOCYTIC LEUKAEMIA
     Dosage: 10 MG (ON DAYS 1-3)
     Route: 065
     Dates: start: 2017, end: 2017
  4. MOXIFLOXACIN. [Suspect]
     Active Substance: MOXIFLOXACIN
     Indication: PYREXIA
     Dosage: UNK
     Route: 065
     Dates: start: 2017, end: 2017
  5. VORICONAZOLE. [Concomitant]
     Active Substance: VORICONAZOLE
     Indication: ANTIFUNGAL PROPHYLAXIS
     Route: 048
     Dates: start: 2017, end: 2017
  6. PREDNISONE. [Suspect]
     Active Substance: PREDNISONE
     Indication: ACUTE LYMPHOCYTIC LEUKAEMIA
     Dosage: 30 MG(ON DAYS 15-28)
     Route: 065
     Dates: start: 2017, end: 2017
  7. CYCLOPHOSPHAMIDE. [Suspect]
     Active Substance: CYCLOPHOSPHAMIDE
     Indication: ACUTE LYMPHOCYTIC LEUKAEMIA
     Dosage: 1 G (ON DAY 1)
     Route: 065
     Dates: start: 2017, end: 2017
  8. PREDNISONE. [Suspect]
     Active Substance: PREDNISONE
     Dosage: 50 MG(ON DAYS 1-14)
     Route: 065
     Dates: start: 2017, end: 2017
  9. CEFOTAXIME [Suspect]
     Active Substance: CEFOTAXIME SODIUM
     Indication: PYREXIA
     Dosage: UNK
     Route: 065
     Dates: start: 2017, end: 2017

REACTIONS (3)
  - Neutropenia [Recovered/Resolved]
  - Fusarium infection [Recovered/Resolved]
  - Product use in unapproved indication [Unknown]

NARRATIVE: CASE EVENT DATE: 2017
